FAERS Safety Report 8399754-1 (Version None)
Quarter: 2012Q2

REPORT INFORMATION
  Report Type: 
  Country: None (occurrence: None)
  Receive Date: 20120531
  Receipt Date: 20120524
  Transmission Date: 20120825
  Serious: Yes (Hospitalization, Other)
  Sender: FDA-Public Use
  Company Number: 2012SP001503

PATIENT
  Sex: Female

DRUGS (6)
  1. LATUDA [Suspect]
     Indication: PRODUCT USED FOR UNKNOWN INDICATION
     Route: 048
     Dates: start: 20120319, end: 20120329
  2. LATUDA [Suspect]
     Route: 048
     Dates: start: 20120223, end: 20120318
  3. LISINOPRIL [Suspect]
     Indication: BLOOD PRESSURE INCREASED
     Dates: start: 20120320, end: 20120329
  4. FANAPT [Concomitant]
     Indication: PRODUCT USED FOR UNKNOWN INDICATION
  5. LATUDA [Suspect]
     Route: 048
     Dates: start: 20120223, end: 20120318
  6. LATUDA [Suspect]
     Indication: HALLUCINATION
     Route: 048
     Dates: start: 20120319, end: 20120329

REACTIONS (2)
  - ANGIOEDEMA [None]
  - BLOOD PRESSURE INCREASED [None]
